FAERS Safety Report 16679501 (Version 1)
Quarter: 2019Q3

REPORT INFORMATION
  Report Type: Report from Study
  Country: GR (occurrence: GR)
  Receive Date: 20190807
  Receipt Date: 20190807
  Transmission Date: 20191004
  Serious: Yes (Other)
  Sender: FDA-Public Use
  Company Number: GR-MYLANLABS-2019M1073528

PATIENT
  Sex: Male

DRUGS (1)
  1. CLIFT (GLATIRAMER ACETATE) [Suspect]
     Active Substance: GLATIRAMER ACETATE
     Indication: MULTIPLE SCLEROSIS
     Dosage: 20 MILLIGRAM, QD
     Route: 058
     Dates: start: 20180704, end: 20190720

REACTIONS (1)
  - Drug ineffective [Unknown]
